FAERS Safety Report 7354935 (Version 3)
Quarter: 2012Q4

REPORT INFORMATION
  Report Type: 
  Country: CN (occurrence: CN)
  Receive Date: 20100414
  Receipt Date: 20121219
  Transmission Date: 20130627
  Serious: Yes (Hospitalization, Other)
  Sender: FDA-Public Use
  Company Number: PHHY2010CN18568

PATIENT
  Age: 65 Year
  Sex: Female

DRUGS (1)
  1. ACLASTA [Suspect]
     Indication: OSTEOPOROSIS POSTMENOPAUSAL
     Dosage: 100 ml, 5 mg, once per year
     Route: 042
     Dates: start: 20100324, end: 20100324

REACTIONS (13)
  - Gastrointestinal haemorrhage [Unknown]
  - Haematochezia [Unknown]
  - Vaginal haemorrhage [Unknown]
  - Urinary incontinence [Recovered/Resolved]
  - Red blood cell sedimentation rate increased [Unknown]
  - Gait disturbance [Unknown]
  - Hypertension [Unknown]
  - C-reactive protein increased [Unknown]
  - Myalgia [Not Recovered/Not Resolved]
  - Pyrexia [Unknown]
  - Pain in extremity [Recovering/Resolving]
  - Overdose [Unknown]
  - Pain [Recovering/Resolving]
